FAERS Safety Report 5029428-6 (Version None)
Quarter: 2006Q2

REPORT INFORMATION
  Report Type: 
  Country: None (occurrence: None)
  Receive Date: 20060613
  Receipt Date: 20060529
  Transmission Date: 20061013
  Serious: Yes (Death)
  Sender: FDA-Public Use
  Company Number: GBR-2006-0002316

PATIENT
  Age: 75 Year
  Sex: Female

DRUGS (1)
  1. OXYCODONE HCL [Suspect]
     Dosage: ORAL
     Route: 048

REACTIONS (1)
  - DEATH [None]
